FAERS Safety Report 6762240-6 (Version None)
Quarter: 2010Q2

REPORT INFORMATION
  Report Type: 
  Country: None (occurrence: None)
  Receive Date: 20100609
  Receipt Date: 20100603
  Transmission Date: 20101027
  Serious: Yes (Life-Threatening, Other)
  Sender: FDA-Public Use
  Company Number: PHHY2010US24134

PATIENT
  Sex: Male
  Weight: 163 kg

DRUGS (12)
  1. TRILEPTAL [Suspect]
     Indication: BIPOLAR I DISORDER
     Dosage: 300 MG, UNK
     Route: 048
     Dates: end: 20090801
  2. TRILEPTAL [Suspect]
     Dosage: 600 MG, QHS
     Route: 048
     Dates: start: 20001101, end: 20090801
  3. TRILEPTAL [Suspect]
     Dosage: UNK,UNK
     Dates: end: 20090911
  4. OXCARBAZEPINE [Suspect]
  5. TRAZODONE HCL [Concomitant]
     Indication: INSOMNIA
     Dosage: 200 MG, QHS
     Route: 048
     Dates: start: 19990730
  6. VALIUM [Concomitant]
  7. TRIAMCINOLONE [Concomitant]
  8. MIACALCIN [Concomitant]
     Dosage: 5 MG, UNK
  9. LORTAB [Concomitant]
  10. PRILOSEC [Concomitant]
  11. NEURONTIN [Concomitant]
     Dosage: UNK
  12. GABAPENTIN [Concomitant]
     Indication: NEURALGIA
     Dosage: 300 MG, BID
     Route: 048
     Dates: start: 19981116, end: 20090515

REACTIONS (9)
  - DISCOMFORT [None]
  - FEELING ABNORMAL [None]
  - MOOD SWINGS [None]
  - MUSCLE SPASMS [None]
  - NERVE INJURY [None]
  - NEUROPATHY PERIPHERAL [None]
  - PAIN [None]
  - PARAESTHESIA [None]
  - SURGERY [None]
